FAERS Safety Report 4443962-9 (Version None)
Quarter: 2004Q3

REPORT INFORMATION
  Report Type: 
  Country: None (occurrence: None)
  Receive Date: 20040729
  Receipt Date: 20031229
  Transmission Date: 20050211
  Serious: Yes (Hospitalization)
  Sender: FDA-Public Use
  Company Number: KII-2003-0006688

PATIENT
  Sex: Female

DRUGS (1)
  1. MORPHINE SULFATE [Suspect]
     Indication: PAIN
     Dosage: 1200 MG,

REACTIONS (3)
  - DRUG TOLERANCE [None]
  - INADEQUATE ANALGESIA [None]
  - RESPIRATORY DEPRESSION [None]
